FAERS Safety Report 9173704 (Version 1)
Quarter: 2013Q1

REPORT INFORMATION
  Report Type: Spontaneous
  Country: US (occurrence: US)
  Receive Date: 20130320
  Receipt Date: 20130320
  Transmission Date: 20140127
  Serious: Yes (Other)
  Sender: FDA-Public Use
  Company Number: US-ASTELLAS-2013US002934

PATIENT
  Age: 46 Year
  Sex: Female

DRUGS (1)
  1. LEXISCAN [Suspect]
     Indication: SCAN MYOCARDIAL PERFUSION
     Dosage: 0.4 MG, TOTAL DOSE
     Route: 042
     Dates: start: 20130307, end: 20130307

REACTIONS (3)
  - Oxygen saturation decreased [Unknown]
  - Nausea [Unknown]
  - Rash [Unknown]
